FAERS Safety Report 20622862 (Version 5)
Quarter: 2022Q2

REPORT INFORMATION
  Report Type: Spontaneous
  Country: PL (occurrence: None)
  Receive Date: 20220322
  Receipt Date: 20220422
  Transmission Date: 20220721
  Serious: Yes (Hospitalization, Other)
  Sender: FDA-Public Use
  Company Number: 2022A113062

PATIENT
  Age: 62 Year
  Sex: Male

DRUGS (17)
  1. ESOMEPRAZOLE [Suspect]
     Active Substance: ESOMEPRAZOLE
     Indication: Renal failure
     Dosage: 20 MG20.0MG UNKNOWN
     Route: 065
  2. ROSUVASTATIN [Suspect]
     Active Substance: ROSUVASTATIN
     Indication: Carotid arteriosclerosis
     Dosage: 40 MG40.0MG UNKNOWN
     Route: 065
  3. ROSUVASTATIN [Suspect]
     Active Substance: ROSUVASTATIN
     Indication: Hypertension
     Dosage: 40 MG40.0MG UNKNOWN
     Route: 065
  4. RAMIPRIL [Suspect]
     Active Substance: RAMIPRIL
     Indication: Cardiac failure
     Dosage: 10 MG10.0MG UNKNOWN
     Route: 065
  5. BISOPROLOL FUMARATE [Suspect]
     Active Substance: BISOPROLOL FUMARATE
     Indication: Coronary artery disease
     Dosage: UNKNOWN
     Route: 065
  6. BISOPROLOL FUMARATE [Suspect]
     Active Substance: BISOPROLOL FUMARATE
     Indication: Cardiac failure
     Dosage: UNKNOWN
     Route: 065
  7. AMLODIPINE\RAMIPRIL [Suspect]
     Active Substance: AMLODIPINE\RAMIPRIL
     Indication: Product used for unknown indication
     Dosage: UNKNOWN
     Route: 065
  8. PANTOPRAZOLE [Suspect]
     Active Substance: PANTOPRAZOLE
     Indication: Helicobacter gastritis
     Dosage: 2X40 MG
     Route: 065
  9. ASPIRIN [Suspect]
     Active Substance: ASPIRIN
     Indication: Postoperative care
     Dosage: 75 MG75.0MG UNKNOWN
     Route: 065
  10. ASPIRIN [Suspect]
     Active Substance: ASPIRIN
     Indication: Carotid arteriosclerosis
     Dosage: 75 MG75.0MG UNKNOWN
     Route: 065
  11. ASPIRIN [Suspect]
     Active Substance: ASPIRIN
     Indication: Hypertension
     Dosage: 75 MG75.0MG UNKNOWN
     Route: 065
  12. BISOPROLOL [Suspect]
     Active Substance: BISOPROLOL
     Indication: Coronary artery disease
     Dosage: UNK
     Route: 065
  13. BISOPROLOL [Suspect]
     Active Substance: BISOPROLOL
     Indication: Cardiac failure
     Dosage: UNK
     Route: 065
  14. CLOPIDOGREL [Suspect]
     Active Substance: CLOPIDOGREL BISULFATE
     Indication: Product used for unknown indication
     Route: 065
  15. ESOMEPRAZOLE MAGNESIUM [Concomitant]
     Active Substance: ESOMEPRAZOLE MAGNESIUM
     Indication: Product used for unknown indication
     Dosage: UNK
  16. CLOPIDOGREL [Concomitant]
     Active Substance: CLOPIDOGREL BISULFATE
     Indication: Postoperative care
     Dosage: UNK
     Route: 065
  17. ESOMEPRAZOLE [ESOMEPRAZOLE SODIUM] [Concomitant]
     Indication: Postoperative care
     Route: 065

REACTIONS (28)
  - Diastolic dysfunction [Unknown]
  - Aortic valve incompetence [Unknown]
  - Carotid arteriosclerosis [Unknown]
  - Ventricular hypokinesia [Unknown]
  - Hyperlipidaemia [Unknown]
  - Ejection fraction decreased [Unknown]
  - Acute kidney injury [Unknown]
  - Mitral valve incompetence [Unknown]
  - Palpitations [Unknown]
  - Carotid artery stenosis [Unknown]
  - Dyspnoea at rest [Unknown]
  - Chronic kidney disease [Unknown]
  - Cardiac failure [Unknown]
  - Occult blood [Unknown]
  - Tricuspid valve incompetence [Unknown]
  - Rales [Unknown]
  - Anaemia macrocytic [Unknown]
  - Systolic dysfunction [Unknown]
  - Acute myocardial infarction [Unknown]
  - Hepatojugular reflux [Unknown]
  - Helicobacter gastritis [Unknown]
  - Pericardial effusion [Unknown]
  - Coronary artery disease [Unknown]
  - Electrocardiogram Q wave abnormal [Unknown]
  - Angiopathy [Unknown]
  - Asthenia [Unknown]
  - Left ventricular hypertrophy [Unknown]
  - Oedema peripheral [Unknown]

NARRATIVE: CASE EVENT DATE: 20190918
